FAERS Safety Report 6575237-6 (Version None)
Quarter: 2010Q1

REPORT INFORMATION
  Report Type: 
  Country: None (occurrence: None)
  Receive Date: 20100209
  Receipt Date: 20100202
  Transmission Date: 20100710
  Serious: Yes (Other)
  Sender: FDA-Public Use
  Company Number: GXKR2010GB01445

PATIENT
  Age: 20 Year
  Sex: Female

DRUGS (3)
  1. MIRTAZAPINE [Suspect]
     Indication: DEPRESSION
     Dosage: 15 MG, UNK
     Route: 065
     Dates: start: 20091101
  2. REMICADE [Interacting]
     Indication: RHEUMATOID ARTHRITIS
     Dosage: 8 INFUSIONS
     Route: 042
  3. REMICADE [Interacting]
     Dosage: 9TH INFUSION
     Route: 042
     Dates: start: 20091123

REACTIONS (3)
  - DEPRESSION [None]
  - HYPERSENSITIVITY [None]
  - INFUSION RELATED REACTION [None]
